FAERS Safety Report 24262575 (Version 1)
Quarter: 2024Q3

REPORT INFORMATION
  Report Type: Spontaneous
  Country: GB (occurrence: GB)
  Receive Date: 20240829
  Receipt Date: 20240829
  Transmission Date: 20241016
  Serious: Yes (Hospitalization)
  Sender: DR REDDYS
  Company Number: None

PATIENT
  Age: 79 Year
  Sex: Female

DRUGS (7)
  1. IMATINIB [Suspect]
     Active Substance: IMATINIB
     Indication: Product used for unknown indication
     Dates: start: 20240524, end: 20240812
  2. BISOPROLOL [Concomitant]
     Active Substance: BISOPROLOL\BISOPROLOL FUMARATE
     Indication: Product used for unknown indication
     Dosage: 1.25MG TABLETS, ONE TO BE TAKEN EACH DAY
  3. Hylo-Tear [Concomitant]
     Indication: Product used for unknown indication
     Dosage: HYLO-TEAR 0.1% EYE DROPS PRESERVATIVE FREE USE AS DIRECTED - BE PRN?EARAND#X2F;EYE DROPS, SOLUTION
     Route: 047
  4. LEVOTHYROXINE [Concomitant]
     Active Substance: LEVOTHYROXINE\LEVOTHYROXINE SODIUM
     Indication: Product used for unknown indication
     Dosage: 25MICROGRAM TABLETS, ONE TO BE TAKEN EACH MORNING
  5. CALCIUM CARBONATE\CHOLECALCIFEROL [Concomitant]
     Active Substance: CALCIUM CARBONATE\CHOLECALCIFEROL
     Indication: Product used for unknown indication
     Dosage: 750MG/200UNIT CAPLETS TWO TO BE TAKEN TWICE A DAY - PT ONLY TAKES 1 OD WHEN SHE REMEMBERS
  6. DAPAGLIFLOZIN [Concomitant]
     Active Substance: DAPAGLIFLOZIN
     Indication: Product used for unknown indication
     Dosage: EXPIRY: 8/2024?10MG TABLETS, ONE TO BE TAKEN DAILY AS PER HF TEAM
     Dates: end: 20240812
  7. IBANDRONIC ACID [Concomitant]
     Active Substance: IBANDRONIC ACID
     Indication: Product used for unknown indication
     Dosage: 150MG TABLETS, ONE TO BE TAKEN EACH MONTH 1 HOUR BEFORE BREAKFAST, 1 TABLET - DUE NEXT WEEK (TAKES M

REACTIONS (7)
  - Dermatitis allergic [Recovered/Resolved with Sequelae]
  - Oral candidiasis [Unknown]
  - Diarrhoea [Unknown]
  - Abdominal pain [Unknown]
  - Skin warm [Unknown]
  - Rash pruritic [Unknown]
  - Nausea [Unknown]
